FAERS Safety Report 6275738-4 (Version None)
Quarter: 2009Q3

REPORT INFORMATION
  Report Type: 
  Country: None (occurrence: None)
  Receive Date: 20090721
  Receipt Date: 20090715
  Transmission Date: 20100115
  Serious: Yes (Other)
  Sender: FDA-Public Use
  Company Number: PHEH2009US07556

PATIENT
  Sex: Female

DRUGS (12)
  1. TEKTURNA [Suspect]
     Indication: HYPERTENSION
     Dosage: 300 MG, QD
     Route: 048
     Dates: start: 20090708
  2. PREMARIN [Concomitant]
  3. NAMENDA [Concomitant]
  4. ATIVAN [Concomitant]
  5. COREG [Concomitant]
  6. PRISTIQ [Concomitant]
  7. NEXIUM [Concomitant]
  8. LASIX [Concomitant]
  9. SYNTHROID [Concomitant]
  10. LANOXIN [Concomitant]
  11. NORVASC [Concomitant]
  12. ARICEPT [Concomitant]

REACTIONS (2)
  - DEPRESSION [None]
  - NIGHTMARE [None]
